FAERS Safety Report 11896736 (Version 1)
Quarter: 2016Q1

REPORT INFORMATION
  Report Type: Spontaneous
  Country: TN (occurrence: TN)
  Receive Date: 20160107
  Receipt Date: 20160107
  Transmission Date: 20160526
  Serious: Yes (Hospitalization, Other)
  Sender: FDA-Public Use
  Company Number: TN-CELGENE-TUN-2015126387

PATIENT
  Age: 43 Year
  Sex: Female

DRUGS (3)
  1. THALIDOMIDE CELGENE [Suspect]
     Active Substance: THALIDOMIDE
     Indication: OFF LABEL USE
  2. DISULONE [Concomitant]
     Active Substance: DAPSONE\FERROUS OXALATE
     Indication: PYODERMA GANGRENOSUM
     Route: 065
  3. THALIDOMIDE CELGENE [Suspect]
     Active Substance: THALIDOMIDE
     Indication: PYODERMA GANGRENOSUM
     Dosage: 200 MILLIGRAM
     Route: 048

REACTIONS (1)
  - Histiocytosis haematophagic [Unknown]
